FAERS Safety Report 4501401-3 (Version None)
Quarter: 2004Q4

REPORT INFORMATION
  Report Type: 
  Country: None (occurrence: None)
  Receive Date: 20041110
  Receipt Date: 20041027
  Transmission Date: 20050328
  Serious: Yes (Hospitalization)
  Sender: FDA-Public Use
  Company Number: 2004-BP-10782BP

PATIENT
  Age: 69 Year
  Sex: Male
  Weight: 87.3 kg

DRUGS (17)
  1. MICARDIS [Suspect]
     Indication: PROPHYLAXIS
     Dosage: 80 MG (80 MG), PO
     Route: 048
     Dates: start: 20040109, end: 20040213
  2. MICARDIS [Suspect]
     Indication: RENAL TRANSPLANT
     Dosage: 80 MG (80 MG), PO
     Route: 048
     Dates: start: 20040109, end: 20040213
  3. METOPROLOL TARTRATE [Suspect]
     Indication: HYPERTENSION
     Dosage: 50 MG (25 MG)
     Dates: start: 20040107
  4. LASIX [Suspect]
     Indication: HYPERTENSION
     Dosage: 120 MG, PO
     Route: 048
     Dates: start: 20040107
  5. DOXAZOSIN MESYLATE [Suspect]
     Indication: HYPERTENSION
     Dates: end: 20040213
  6. ALDACTONE [Suspect]
     Indication: HYPERTENSION
     Dates: end: 20040213
  7. PREDNISONE [Concomitant]
  8. RAPAMUNE [Concomitant]
  9. ACETYLSALICYLIC ACID SRT [Concomitant]
  10. NPH INSULIN [Concomitant]
  11. HUMALOG [Concomitant]
  12. PROZAC [Concomitant]
  13. LIPITOR [Concomitant]
  14. NIACIN [Concomitant]
  15. KCL (POTASSIUM CHLORIDE) [Concomitant]
  16. VIAGRA (SILDENAFIL TARTRATE) [Concomitant]
  17. ACIPHEX [Concomitant]

REACTIONS (3)
  - BLOOD PRESSURE SYSTOLIC DECREASED [None]
  - HYPOTENSION [None]
  - RENAL FAILURE ACUTE [None]
